FAERS Safety Report 9476109 (Version 1)
Quarter: 2013Q3

REPORT INFORMATION
  Report Type: Spontaneous
  Country: US (occurrence: None)
  Receive Date: 20130823
  Receipt Date: 20130823
  Transmission Date: 20140515
  Serious: Yes (Other)
  Sender: FDA-Public Use
  Company Number: None

PATIENT
  Sex: Female

DRUGS (3)
  1. IMOGAM RABIES [Suspect]
     Dosage: INTRAMUSCULAR, BUTTOCK
     Route: 030
     Dates: start: 20130213
  2. IMOVAX RABIES [Suspect]
  3. TETANUS TOXOID [Suspect]

REACTIONS (4)
  - Local swelling [None]
  - Paraesthesia [None]
  - Vaccination site inflammation [None]
  - Pain [None]
